FAERS Safety Report 25971497 (Version 1)
Quarter: 2025Q4

REPORT INFORMATION
  Report Type: Spontaneous
  Country: US (occurrence: US)
  Receive Date: 20251029
  Receipt Date: 20251029
  Transmission Date: 20260117
  Serious: No
  Sender: ROCHE
  Company Number: US-ROCHE-10000416583

PATIENT
  Age: 34 Year
  Sex: Male

DRUGS (2)
  1. HEMLIBRA [Suspect]
     Active Substance: EMICIZUMAB-KXWH
     Indication: Factor VIII deficiency
     Dosage: FROM STRENGTH: 150 MG/ML
     Route: 058
     Dates: start: 202206
  2. XYNTHA [Concomitant]
     Active Substance: MOROCTOCOG ALFA

REACTIONS (2)
  - Haematuria [Recovered/Resolved]
  - Infection [Unknown]

NARRATIVE: CASE EVENT DATE: 20251015
